FAERS Safety Report 23141878 (Version 1)
Quarter: 2023Q4

REPORT INFORMATION
  Report Type: Spontaneous
  Country: CA (occurrence: CA)
  Receive Date: 20231103
  Receipt Date: 20231103
  Transmission Date: 20240110
  Serious: Yes (Other)
  Sender: FDA-Public Use
  Company Number: CA-002147023-NVSC2023CA234784

PATIENT
  Age: 66 Year
  Sex: Male

DRUGS (1)
  1. LEQVIO [Suspect]
     Active Substance: INCLISIRAN SODIUM
     Indication: Product used for unknown indication
     Dosage: UNK
     Route: 065

REACTIONS (6)
  - COVID-19 [Unknown]
  - Taste disorder [Unknown]
  - Nausea [Unknown]
  - Ill-defined disorder [Unknown]
  - Faeces soft [Unknown]
  - Frequent bowel movements [Unknown]
